FAERS Safety Report 6816914-9 (Version None)
Quarter: 2010Q3

REPORT INFORMATION
  Report Type: 
  Country: None (occurrence: None)
  Receive Date: 20100706
  Receipt Date: 20100623
  Transmission Date: 20110219
  Serious: Yes (Other)
  Sender: FDA-Public Use
  Company Number: GR-JNJFOC-20100608114

PATIENT
  Age: 26 Year
  Sex: Female

DRUGS (2)
  1. REMICADE [Suspect]
     Indication: COLITIS ULCERATIVE
     Dosage: 'HALF DOSE'
     Route: 042
  2. REMICADE [Suspect]
     Route: 042

REACTIONS (3)
  - DERMATITIS [None]
  - PSORIASIS [None]
  - SEBORRHOEA [None]
